FAERS Safety Report 6911097-9 (Version None)
Quarter: 2010Q3

REPORT INFORMATION
  Report Type: 
  Country: None (occurrence: None)
  Receive Date: 20100806
  Receipt Date: 20100728
  Transmission Date: 20110219
  Serious: Yes (Hospitalization, Other)
  Sender: FDA-Public Use
  Company Number: US-AMGEN-QUU427622

PATIENT
  Sex: Male

DRUGS (2)
  1. ENBREL [Suspect]
     Indication: RHEUMATOID ARTHRITIS
     Route: 058
  2. ENBREL [Suspect]
     Indication: PSORIATIC ARTHROPATHY

REACTIONS (11)
  - ABDOMINAL DISCOMFORT [None]
  - CARDIAC PACEMAKER INSERTION [None]
  - HEADACHE [None]
  - NEUROPATHY PERIPHERAL [None]
  - OSTEOARTHRITIS [None]
  - RASH ERYTHEMATOUS [None]
  - SKIN DISORDER [None]
  - SLEEP APNOEA SYNDROME [None]
  - SOMNOLENCE [None]
  - THIRST [None]
  - TYPE 2 DIABETES MELLITUS [None]
